FAERS Safety Report 7439119-X (Version None)
Quarter: 2011Q2

REPORT INFORMATION
  Report Type: 
  Country: None (occurrence: None)
  Receive Date: 20110427
  Receipt Date: 20101102
  Transmission Date: 20111010
  Serious: Yes (Other)
  Sender: FDA-Public Use
  Company Number: US-BAYER-201031332NA

PATIENT
  Age: 31 Year
  Sex: Female
  Weight: 92.971 kg

DRUGS (8)
  1. FLUCONAZOLE [Concomitant]
     Dosage: 150 MG, UNK
     Route: 048
  2. MOTRIN [Concomitant]
     Dosage: AS NEEDED
     Dates: start: 20050101
  3. YAZ [Suspect]
     Indication: CONTRACEPTION
     Route: 065
     Dates: start: 20070611, end: 20091116
  4. YAZ [Suspect]
  5. NEXIUM [Concomitant]
     Indication: ABDOMINAL DISCOMFORT
     Dosage: UNK
     Dates: start: 20080702, end: 20080802
  6. ACETAMINOPHEN [Concomitant]
     Indication: PAIN
     Dosage: UNK
     Dates: start: 20080601, end: 20080801
  7. YAZ [Suspect]
     Indication: PREMENSTRUAL SYNDROME
  8. PHENTERMINE [Concomitant]
     Indication: WEIGHT DECREASED
     Dosage: UNK
     Dates: start: 20070101, end: 20100101

REACTIONS (2)
  - CHOLECYSTITIS ACUTE [None]
  - CHOLELITHIASIS [None]
